FAERS Safety Report 18640236 (Version 1)
Quarter: 2020Q4

REPORT INFORMATION
  Report Type: Spontaneous
  Country: US (occurrence: US)
  Receive Date: 20201220
  Receipt Date: 20201220
  Transmission Date: 20210114
  Serious: No
  Sender: FDA-Public Use
  Company Number: US-AMGEN-USASP2020205134

PATIENT
  Sex: Male

DRUGS (2)
  1. XGEVA [Suspect]
     Active Substance: DENOSUMAB
     Indication: PROSTATE CANCER METASTATIC
     Dosage: UNK UNK, QMO
     Route: 065
     Dates: start: 2019
  2. LUPRON [Concomitant]
     Active Substance: LEUPROLIDE ACETATE

REACTIONS (4)
  - Hot flush [Unknown]
  - Pain in jaw [Unknown]
  - Tooth fracture [Unknown]
  - Hyperaesthesia teeth [Recovered/Resolved]

NARRATIVE: CASE EVENT DATE: 20201211
